FAERS Safety Report 13416741 (Version 1)
Quarter: 2017Q2

REPORT INFORMATION
  Report Type: Spontaneous
  Country: FR (occurrence: FR)
  Receive Date: 20170407
  Receipt Date: 20170407
  Transmission Date: 20170830
  Serious: Yes (Other)
  Sender: FDA-Public Use
  Company Number: FR-ASTRAZENECA-2017SE35201

PATIENT
  Age: 858 Month
  Sex: Male

DRUGS (6)
  1. SYMBICORT [Suspect]
     Active Substance: BUDESONIDE\FORMOTEROL FUMARATE DIHYDRATE
     Route: 055
  2. PLAVIX [Concomitant]
     Active Substance: CLOPIDOGREL BISULFATE
  3. METOJECT [Suspect]
     Active Substance: METHOTREXATE SODIUM
     Indication: RHEUMATOID ARTHRITIS
     Dosage: 1.4286 MG (10 MG, ONCE   PER WEEK)
     Route: 058
     Dates: start: 2005, end: 20151010
  4. HUMIRA [Suspect]
     Active Substance: ADALIMUMAB
     Indication: RHEUMATOID ARTHRITIS
     Dosage: 2.6667 MG (40 MG, EVERY TWO WEEKS)
     Route: 058
     Dates: start: 2007, end: 20151010
  5. XANAX [Concomitant]
     Active Substance: ALPRAZOLAM
  6. CRESTOR [Concomitant]
     Active Substance: ROSUVASTATIN CALCIUM

REACTIONS (4)
  - Nocardiosis [Recovering/Resolving]
  - Hypogammaglobulinaemia [Recovering/Resolving]
  - Haemoptysis [Unknown]
  - Pain [Unknown]

NARRATIVE: CASE EVENT DATE: 201503
